FAERS Safety Report 7348352-7 (Version None)
Quarter: 2011Q1

REPORT INFORMATION
  Report Type: 
  Country: None (occurrence: None)
  Receive Date: 20110311
  Receipt Date: 20110309
  Transmission Date: 20110831
  Serious: Yes (Life-Threatening)
  Sender: FDA-Public Use
  Company Number: GB-PFIZER INC-2011052635

PATIENT
  Age: 29 Year
  Sex: Male
  Weight: 71 kg

DRUGS (2)
  1. CHAMPIX [Suspect]
     Dosage: 500 UG, 2X/DAY
     Route: 048
     Dates: start: 20110227, end: 20110302
  2. CHAMPIX [Suspect]
     Indication: SMOKING CESSATION THERAPY
     Dosage: 1000 UG, 2X/DAY
     Route: 048
     Dates: start: 20110202, end: 20110227

REACTIONS (3)
  - THINKING ABNORMAL [None]
  - INTENTIONAL SELF-INJURY [None]
  - IRRITABILITY [None]
